FAERS Safety Report 6788119-1 (Version None)
Quarter: 2010Q2

REPORT INFORMATION
  Report Type: 
  Country: None (occurrence: None)
  Receive Date: 20100621
  Receipt Date: 20100609
  Transmission Date: 20101027
  Serious: Yes (Other)
  Sender: FDA-Public Use
  Company Number: 7007654

PATIENT
  Age: 46 Year
  Sex: Female

DRUGS (1)
  1. REBIF [Suspect]
     Indication: DRUG USE FOR UNKNOWN INDICATION
     Dosage: 44MCG, 3 IN 1 WK, SUBCUTANEOUS
     Route: 058
     Dates: start: 20050207

REACTIONS (2)
  - HYSTERECTOMY [None]
  - INFLUENZA LIKE ILLNESS [None]
